FAERS Safety Report 13495779 (Version 10)
Quarter: 2019Q4

REPORT INFORMATION
  Report Type: Report from Study
  Country: CA (occurrence: CA)
  Receive Date: 20170428
  Receipt Date: 20191009
  Transmission Date: 20200122
  Serious: Yes (Hospitalization)
  Sender: FDA-Public Use
  Company Number: CA-ROCHE-1923298

PATIENT
  Age: 59 Year
  Sex: Male
  Weight: 84 kg

DRUGS (12)
  1. ENZALUTAMIDE [Suspect]
     Active Substance: ENZALUTAMIDE
     Indication: HORMONE-REFRACTORY PROSTATE CANCER
     Dosage: THE DATE OF THE MOST RECENT DOSE OF  ENZALUTAMIDE 160 MG PRIOR TO SAE ONSET WAS ADMINISTERED ON 06/A
     Route: 048
     Dates: start: 20170406
  2. XGEVA [Concomitant]
     Active Substance: DENOSUMAB
     Route: 058
     Dates: start: 20170225
  3. ATEZOLIZUMAB. [Suspect]
     Active Substance: ATEZOLIZUMAB
     Indication: HORMONE-REFRACTORY PROSTATE CANCER
     Dosage: THE DATE OF THE MOST RECENT DOSE OF ATEZOLIZUAMB 1200 MG PRIOR TO SAE ONSET WAS ADMINISTERED ON 06/A
     Route: 042
     Dates: start: 20170406
  4. BENADRYL [Concomitant]
     Active Substance: DIPHENHYDRAMINE HYDROCHLORIDE
     Route: 048
     Dates: start: 20170416
  5. XGEVA [Concomitant]
     Active Substance: DENOSUMAB
     Route: 058
     Dates: start: 201304
  6. EZETIMIBE. [Concomitant]
     Active Substance: EZETIMIBE
     Route: 048
     Dates: start: 201403
  7. IRBESARTAN. [Concomitant]
     Active Substance: IRBESARTAN
     Route: 048
     Dates: start: 201301
  8. BENADRYL [Concomitant]
     Active Substance: DIPHENHYDRAMINE HYDROCHLORIDE
     Route: 048
     Dates: start: 20170414, end: 20170416
  9. FIRMAGON [Concomitant]
     Active Substance: DEGARELIX ACETATE
     Route: 058
     Dates: start: 20131128
  10. PRAVASTATIN. [Concomitant]
     Active Substance: PRAVASTATIN
     Route: 048
     Dates: start: 201301
  11. ATARAX [Concomitant]
     Active Substance: HYDROXYZINE HYDROCHLORIDE
     Route: 048
     Dates: start: 20170414
  12. FIRMAGON [Concomitant]
     Active Substance: DEGARELIX ACETATE
     Route: 058
     Dates: start: 20170316

REACTIONS (2)
  - Rash maculo-papular [Recovered/Resolved]
  - Myocarditis [Recovered/Resolved]

NARRATIVE: CASE EVENT DATE: 20170413
